FAERS Safety Report 14781182 (Version 4)
Quarter: 2020Q2

REPORT INFORMATION
  Report Type: Report from Study
  Country: US (occurrence: US)
  Receive Date: 20180419
  Receipt Date: 20200612
  Transmission Date: 20200713
  Serious: Yes (Other)
  Sender: FDA-Public Use
  Company Number: PHHY2018US007830

PATIENT
  Age: 49 Year
  Sex: Female

DRUGS (1)
  1. GILENYA [Suspect]
     Active Substance: FINGOLIMOD HYDROCHLORIDE
     Indication: MULTIPLE SCLEROSIS
     Dosage: UNK UNK, QD
     Route: 048
     Dates: start: 20171026, end: 20171027

REACTIONS (9)
  - Haemangioma [Not Recovered/Not Resolved]
  - Solar lentigo [Not Recovered/Not Resolved]
  - Fibrous histiocytoma [Not Recovered/Not Resolved]
  - Bundle branch block [Unknown]
  - Xerosis [Not Recovered/Not Resolved]
  - Rosacea [Not Recovered/Not Resolved]
  - Melanocytic naevus [Not Recovered/Not Resolved]
  - Hypoaesthesia [Unknown]
  - Musculoskeletal pain [Unknown]

NARRATIVE: CASE EVENT DATE: 20171019
